FAERS Safety Report 24142992 (Version 1)
Quarter: 2024Q3

REPORT INFORMATION
  Report Type: Report from Study
  Country: US (occurrence: US)
  Receive Date: 20240726
  Receipt Date: 20240726
  Transmission Date: 20241016
  Serious: Yes (Hospitalization)
  Sender: ALNYLAM PHARMACEUTICALS
  Company Number: US-ALNYLAM PHARMACEUTICALS, INC.-ALN-2024-004069

PATIENT

DRUGS (1)
  1. GIVLAARI [Suspect]
     Active Substance: GIVOSIRAN SODIUM
     Indication: Porphyria acute
     Dosage: 270.45 MILLIGRAM, MONTHLY
     Route: 058
     Dates: start: 20240702, end: 20240702

REACTIONS (6)
  - Feeling abnormal [Unknown]
  - Pyrexia [Unknown]
  - Porphyria acute [Unknown]
  - Hepatic enzyme increased [Unknown]
  - Infection [Unknown]
  - Weight fluctuation [Unknown]

NARRATIVE: CASE EVENT DATE: 20240701
